FAERS Safety Report 24727987 (Version 1)
Quarter: 2024Q4

REPORT INFORMATION
  Report Type: Spontaneous
  Country: US (occurrence: None)
  Receive Date: 20241212
  Receipt Date: 20241212
  Transmission Date: 20250115
  Serious: Yes (Other)
  Sender: Public
  Company Number: None

PATIENT
  Age: 40 Year
  Weight: 58.5 kg

DRUGS (1)
  1. VILOXAZINE [Suspect]
     Active Substance: VILOXAZINE
     Indication: Attention deficit hyperactivity disorder

REACTIONS (3)
  - Drug screen positive [None]
  - Product quality issue [None]
  - Suspected product tampering [None]

NARRATIVE: CASE EVENT DATE: 20241122
